FAERS Safety Report 5947304-9 (Version None)
Quarter: 2008Q4

REPORT INFORMATION
  Report Type: 
  Country: None (occurrence: None)
  Receive Date: 20081110
  Receipt Date: 20081029
  Transmission Date: 20090506
  Serious: Yes (Other)
  Sender: FDA-Public Use
  Company Number: JP-PFIZER INC-2008087898

PATIENT
  Sex: Male
  Weight: 43 kg

DRUGS (7)
  1. EPLERENONE [Suspect]
     Indication: HYPERTENSION
     Dosage: DAILY DOSE:50MG
     Route: 048
     Dates: start: 20080823, end: 20080926
  2. EPLERENONE [Suspect]
     Indication: CARDIAC FAILURE
  3. OLMETEC [Suspect]
     Indication: HYPERTENSION
     Route: 048
     Dates: end: 20081003
  4. LIPIDIL [Suspect]
     Indication: DYSLIPIDAEMIA
     Route: 048
     Dates: start: 20080101, end: 20081003
  5. LIPIDIL [Suspect]
     Indication: HYPERLIPIDAEMIA
  6. LANIRAPID [Concomitant]
     Route: 048
     Dates: start: 20071017
  7. PLAVIX [Concomitant]
     Route: 048
     Dates: start: 20071017

REACTIONS (1)
  - RENAL FAILURE ACUTE [None]
